FAERS Safety Report 7624207-5 (Version None)
Quarter: 2011Q3

REPORT INFORMATION
  Report Type: 
  Country: None (occurrence: None)
  Receive Date: 20110720
  Receipt Date: 20110720
  Transmission Date: 20111222
  Serious: Yes (Hospitalization)
  Sender: FDA-Public Use
  Company Number: None

PATIENT
  Age: 85 Year
  Sex: Male
  Weight: 85 kg

DRUGS (8)
  1. PRADAXA [Suspect]
     Indication: ATRIAL FIBRILLATION
     Dosage: 150 MG
     Route: 048
     Dates: start: 20110415, end: 20110505
  2. CORDARONE [Interacting]
     Route: 048
  3. ASPIRIN [Interacting]
     Route: 048
  4. CELEXA [Interacting]
     Route: 048
  5. HYTRIN [Interacting]
     Route: 048
  6. PRILOSEC [Interacting]
     Route: 048
  7. ZOCOR [Interacting]
     Route: 048
  8. LOPRESSOR [Interacting]
     Route: 048

REACTIONS (3)
  - DEHYDRATION [None]
  - OESOPHAGEAL ULCER [None]
  - DYSPHAGIA [None]
